FAERS Safety Report 7767939-0 (Version None)
Quarter: 2011Q3

REPORT INFORMATION
  Report Type: 
  Country: None (occurrence: None)
  Receive Date: 20110922
  Receipt Date: 20100826
  Transmission Date: 20111222
  Serious: Yes (Other)
  Sender: FDA-Public Use
  Company Number: US-ASTRAZENECA-2009UW00552

PATIENT
  Age: 665 Month
  Sex: Female
  Weight: 96.2 kg

DRUGS (20)
  1. SEROQUEL [Suspect]
     Route: 048
     Dates: start: 20080102
  2. SEROQUEL [Suspect]
     Route: 048
     Dates: start: 20070101
  3. SEROQUEL [Suspect]
     Route: 048
     Dates: start: 20080102
  4. SEROQUEL [Suspect]
     Route: 048
     Dates: start: 20080102
  5. SEROQUEL [Suspect]
     Indication: ANXIETY
     Route: 048
     Dates: start: 19980101
  6. SEROQUEL [Suspect]
     Indication: SCHIZOAFFECTIVE DISORDER
     Route: 048
     Dates: start: 19980101
  7. SOMA [Concomitant]
     Route: 048
     Dates: start: 20070829
  8. ZOCOR [Concomitant]
     Route: 048
     Dates: start: 20070829
  9. SEROQUEL [Suspect]
     Route: 048
     Dates: start: 20070101
  10. SEROQUEL [Suspect]
     Route: 048
     Dates: start: 20070101
  11. VICODIN ES [Concomitant]
     Dosage: 750 MG-7.5 MG 1 TABLET TID
     Route: 048
     Dates: start: 20070829
  12. SEROQUEL [Suspect]
     Indication: SCHIZOPHRENIA
     Route: 048
     Dates: start: 19980101
  13. ALPRAZOLAM [Concomitant]
     Indication: ANXIETY
     Dosage: 0.5 TO 1 MG, 0.5 MG 1/2 TO 1 TAB UPTO BID PRN
     Dates: start: 20070829
  14. SEROQUEL [Suspect]
     Indication: DEPRESSION
     Route: 048
     Dates: start: 19980101
  15. SEROQUEL [Suspect]
     Route: 048
     Dates: start: 20070101
  16. THORAZINE [Concomitant]
     Dates: start: 19950101
  17. ADVAIR DISKUS 100/50 [Concomitant]
     Dosage: 250/50
     Dates: start: 20080617
  18. DIOVAN [Concomitant]
     Dosage: 160/25 MG
     Dates: start: 20080617
  19. HYDROCOD [Concomitant]
     Dosage: 10/500, 7.5/500, 7.5/600, 5/500
     Dates: start: 20080102
  20. SEROQUEL [Suspect]
     Route: 048
     Dates: start: 20080102

REACTIONS (7)
  - PANCREATITIS [None]
  - TYPE 2 DIABETES MELLITUS [None]
  - TYPE 1 DIABETES MELLITUS [None]
  - OBESITY [None]
  - BLOOD CHOLESTEROL INCREASED [None]
  - HYPERLIPIDAEMIA [None]
  - WEIGHT INCREASED [None]
